FAERS Safety Report 14092520 (Version 2)
Quarter: 2018Q4

REPORT INFORMATION
  Report Type: Spontaneous
  Country: JP (occurrence: JP)
  Receive Date: 20171016
  Receipt Date: 20181016
  Transmission Date: 20190204
  Serious: Yes (Other)
  Sender: FDA-Public Use
  Company Number: JP-JNJFOC-20170922180

PATIENT
  Age: 42 Year
  Sex: Male
  Weight: 89 kg

DRUGS (6)
  1. URSO [Concomitant]
     Active Substance: URSODIOL
     Dosage: START DATE: BEFORE 2009
     Route: 048
     Dates: end: 20180309
  2. MICARDIS [Concomitant]
     Active Substance: TELMISARTAN
     Dosage: START DATE: BEFORE 2009
     Route: 048
     Dates: end: 20180309
  3. EUCREAS [Concomitant]
     Active Substance: METFORMIN HYDROCHLORIDE\VILDAGLIPTIN
     Indication: TYPE 2 DIABETES MELLITUS
     Route: 048
     Dates: start: 20160408, end: 20180309
  4. CANAGLU [Suspect]
     Active Substance: CANAGLIFLOZIN
     Indication: TYPE 2 DIABETES MELLITUS
     Route: 048
     Dates: start: 20160916, end: 20180309
  5. CALBLOCK [Concomitant]
     Active Substance: AZELNIDIPINE
     Dosage: START DATE: BEFORE 2009
     Route: 048
     Dates: end: 20180309
  6. ZYLORIC [Concomitant]
     Active Substance: ALLOPURINOL
     Dosage: START DATE: BEFORE 2009
     Route: 048
     Dates: end: 20180309

REACTIONS (1)
  - Hypertriglyceridaemia [Not Recovered/Not Resolved]

NARRATIVE: CASE EVENT DATE: 20170810
